FAERS Safety Report 7897933-0 (Version None)
Quarter: 2011Q4

REPORT INFORMATION
  Report Type: 
  Country: None (occurrence: None)
  Receive Date: 20111107
  Receipt Date: 20111031
  Transmission Date: 20120403
  Serious: Yes (Hospitalization)
  Sender: FDA-Public Use
  Company Number: US-ABBOTT-11P-163-0870548-00

PATIENT
  Sex: Male
  Weight: 67.192 kg

DRUGS (3)
  1. MULTI-VITAMINS [Concomitant]
     Indication: VITAMIN SUPPLEMENTATION
  2. HUMIRA [Suspect]
     Indication: CROHN'S DISEASE
     Dates: start: 20110601, end: 20110601
  3. IMURAN [Concomitant]
     Indication: CROHN'S DISEASE
     Dates: start: 20110701

REACTIONS (7)
  - PYREXIA [None]
  - VOMITING [None]
  - DIARRHOEA [None]
  - ABDOMINAL PAIN [None]
  - NAUSEA [None]
  - INTESTINAL STENOSIS [None]
  - ABDOMINAL ADHESIONS [None]
